FAERS Safety Report 13901080 (Version 1)
Quarter: 2017Q3

REPORT INFORMATION
  Report Type: Spontaneous
  Country: CA (occurrence: CA)
  Receive Date: 20170824
  Receipt Date: 20170824
  Transmission Date: 20171127
  Serious: Yes (Other)
  Sender: FDA-Public Use
  Company Number: CA-BRACCO-2017CA03871

PATIENT
  Age: 39 Year
  Sex: Female

DRUGS (1)
  1. IOPAMIDOL [Suspect]
     Active Substance: IOPAMIDOL
     Indication: ARTERIOGRAM CAROTID
     Dosage: UNK, SINGLE
     Route: 013

REACTIONS (1)
  - Contrast encephalopathy [Recovering/Resolving]
